FAERS Safety Report 6910117-5 (Version None)
Quarter: 2010Q3

REPORT INFORMATION
  Report Type: 
  Country: None (occurrence: None)
  Receive Date: 20100806
  Receipt Date: 20100730
  Transmission Date: 20110219
  Serious: Yes (Hospitalization, Disabling, Other)
  Sender: FDA-Public Use
  Company Number: GB-TEVA-243580ISR

PATIENT
  Age: 79 Year
  Sex: Female
  Weight: 48 kg

DRUGS (1)
  1. LANSOPRAZOLE [Suspect]
     Route: 048
     Dates: start: 20091113, end: 20100719

REACTIONS (3)
  - COLITIS [None]
  - DIARRHOEA [None]
  - WEIGHT DECREASED [None]
